FAERS Safety Report 9053828 (Version 1)
Quarter: 2013Q1

REPORT INFORMATION
  Report Type: Spontaneous
  Country: RO (occurrence: RO)
  Receive Date: 20130207
  Receipt Date: 20130207
  Transmission Date: 20140127
  Serious: Yes (Other)
  Sender: FDA-Public Use
  Company Number: RO-GLAXOSMITHKLINE-B0858192A

PATIENT
  Age: 26 Year
  Sex: Female

DRUGS (1)
  1. LAMOTRIGINE [Suspect]
     Indication: CONVULSION
     Dosage: 75MGD PER DAY
     Route: 065

REACTIONS (17)
  - Drug reaction with eosinophilia and systemic symptoms [Recovered/Resolved]
  - Rash macular [Unknown]
  - Mouth ulceration [Unknown]
  - Pyrexia [Unknown]
  - Lymphadenopathy [Unknown]
  - Myalgia [Unknown]
  - Arthralgia [Unknown]
  - Headache [Unknown]
  - Pruritus [Unknown]
  - Jaundice [Unknown]
  - Oedema [Unknown]
  - Hepatitis acute [Unknown]
  - Hepatic enzyme increased [Recovered/Resolved]
  - Mouth ulceration [Unknown]
  - Hypersensitivity [Unknown]
  - Malaise [Unknown]
  - Decreased appetite [Unknown]
